FAERS Safety Report 9339193 (Version 1)
Quarter: 2013Q2

REPORT INFORMATION
  Report Type: Spontaneous
  Country: FR (occurrence: FR)
  Receive Date: 20130610
  Receipt Date: 20130610
  Transmission Date: 20140414
  Serious: Yes (Other)
  Sender: FDA-Public Use
  Company Number: FR-BAYER-2013-051660

PATIENT
  Age: 45 Year
  Sex: Female
  Weight: 57 kg

DRUGS (2)
  1. MIRENA [Suspect]
     Indication: CONTRACEPTION
     Dosage: 20 MCG/24HR, CONT
     Route: 015
     Dates: start: 20110517
  2. MIRENA [Suspect]
     Indication: ENDOMETRIOSIS

REACTIONS (4)
  - Amenorrhoea [None]
  - Endometriosis [None]
  - Vaginal haemorrhage [None]
  - Pain [None]
